FAERS Safety Report 7662870-3 (Version None)
Quarter: 2011Q3

REPORT INFORMATION
  Report Type: 
  Country: None (occurrence: None)
  Receive Date: 20110805
  Receipt Date: 20100908
  Transmission Date: 20111222
  Serious: No
  Sender: FDA-Public Use
  Company Number: US-ABBOTT-10P-163-0670661-00

PATIENT
  Sex: Female
  Weight: 79.904 kg

DRUGS (6)
  1. UNKNOWN INJECTION [Concomitant]
     Indication: ARTHRITIS
  2. NIASPAN [Suspect]
     Indication: BLOOD CHOLESTEROL INCREASED
     Dosage: EVERY NIGHT
     Dates: start: 20100804, end: 20100901
  3. NORVASC [Concomitant]
     Indication: HYPERTENSION
  4. LEVOTHYROXINE SODIUM [Concomitant]
     Indication: HYPOTHYROIDISM
  5. CLONAZEPAM [Concomitant]
     Indication: RESTLESS LEGS SYNDROME
  6. SIMVASTATIN [Concomitant]
     Indication: BLOOD CHOLESTEROL INCREASED

REACTIONS (5)
  - ERYTHEMA [None]
  - DYSPNOEA [None]
  - PARAESTHESIA [None]
  - PAIN IN EXTREMITY [None]
  - MUSCULOSKELETAL CHEST PAIN [None]
